FAERS Safety Report 9885504 (Version 2)
Quarter: 2014Q2

REPORT INFORMATION
  Report Type: Spontaneous
  Country: BR (occurrence: BR)
  Receive Date: 20140210
  Receipt Date: 20140612
  Transmission Date: 20141212
  Serious: Yes (Other)
  Sender: FDA-Public Use
  Company Number: BR-NOVOPROD-399430

PATIENT
  Age: 40 Year
  Sex: Female
  Weight: 47 kg

DRUGS (6)
  1. NOVOLIN N [Suspect]
     Indication: TYPE 1 DIABETES MELLITUS
     Dosage: UNK (30 IU)
     Route: 058
     Dates: start: 1986, end: 201309
  2. NOVOLIN R [Suspect]
     Indication: TYPE 1 DIABETES MELLITUS
     Dosage: UNK (2 IU)
     Route: 058
     Dates: start: 1986, end: 201304
  3. NOVORAPID PENFILL [Suspect]
     Indication: TYPE 1 DIABETES MELLITUS
     Dosage: UNK  (2 IU)
     Route: 065
     Dates: start: 201304
  4. NOVORAPID PENFILL [Suspect]
     Dosage: UNK  (1 IU)
     Route: 065
  5. NOVORAPID PENFILL [Suspect]
     Dosage: UNK  (2 IU)
     Route: 065
  6. LANTUS [Concomitant]
     Indication: TYPE 1 DIABETES MELLITUS
     Dosage: UNK (20 IU)
     Route: 058
     Dates: start: 201309

REACTIONS (8)
  - Foetal distress syndrome [Unknown]
  - Foetal growth restriction [Unknown]
  - Hypoglycaemic unconsciousness [Recovered/Resolved]
  - Urinary tract infection [Unknown]
  - Exposure during pregnancy [Recovered/Resolved]
  - Wrong technique in drug usage process [Unknown]
  - Hypoglycaemia [Unknown]
  - Blood glucose increased [Unknown]
